FAERS Safety Report 5902588-8 (Version None)
Quarter: 2008Q3

REPORT INFORMATION
  Report Type: 
  Country: None (occurrence: None)
  Receive Date: 20080924
  Receipt Date: 20080910
  Transmission Date: 20090109
  Serious: Yes (Disabling)
  Sender: FDA-Public Use
  Company Number: 1000001025

PATIENT
  Age: 22 Year
  Sex: Female
  Weight: 54 kg

DRUGS (2)
  1. ESCITALOPRAM OXALATE [Suspect]
     Indication: DEPRESSION
     Dosage: 10 MG (10 MG, 1 IN1  D), ORAL
     Route: 048
     Dates: start: 20041126, end: 20060114
  2. ETORICOXIB [Concomitant]

REACTIONS (2)
  - ACCOMMODATION DISORDER [None]
  - VISUAL IMPAIRMENT [None]
